FAERS Safety Report 10171374 (Version 1)
Quarter: 2014Q2

REPORT INFORMATION
  Report Type: Spontaneous
  Country: US (occurrence: None)
  Receive Date: 20140428
  Receipt Date: 20140428
  Transmission Date: 20141212
  Serious: Yes (Other)
  Sender: FDA-Public Use
  Company Number: 2523595-2014-00122

PATIENT
  Age: 9 Year
  Sex: Male
  Weight: 32.8 kg

DRUGS (1)
  1. UVADEX [Suspect]
     Indication: CHRONIC GRAFT VERSUS HOST DISEASE
     Dosage: 1 TO DATE

REACTIONS (3)
  - Abdominal pain [None]
  - Hypotension [None]
  - Vomiting [None]
